FAERS Safety Report 11635291 (Version 5)
Quarter: 2021Q3

REPORT INFORMATION
  Report Type: Spontaneous
  Country: BR (occurrence: BR)
  Receive Date: 20151015
  Receipt Date: 20210715
  Transmission Date: 20211014
  Serious: Yes (Other)
  Sender: FDA-Public Use
  Company Number: BR-DSJP-DSU-2015-131847

PATIENT
  Sex: Female

DRUGS (11)
  1. OLMETEC [Suspect]
     Active Substance: OLMESARTAN MEDOXOMIL
     Dosage: 40 MG
     Route: 065
     Dates: start: 20200909
  2. OLMETEC [Suspect]
     Active Substance: OLMESARTAN MEDOXOMIL
     Indication: BLOOD PRESSURE INADEQUATELY CONTROLLED
     Dosage: 20 MG
     Route: 065
  3. NATRIX [Concomitant]
     Active Substance: INDAPAMIDE
     Indication: PRODUCT USED FOR UNKNOWN INDICATION
     Dosage: UNK
     Route: 065
  4. TAPAZOL                            /00022901/ [Concomitant]
     Indication: HYPERTHYROIDISM
     Dosage: UNK
     Route: 065
  5. ALDACTONE [Concomitant]
     Active Substance: SPIRONOLACTONE
     Indication: PRODUCT USED FOR UNKNOWN INDICATION
     Dosage: UNK
     Route: 065
  6. CAPTOPRIL. [Concomitant]
     Active Substance: CAPTOPRIL
     Indication: PRODUCT USED FOR UNKNOWN INDICATION
     Dosage: UNK
     Route: 060
  7. BICONCOR [Suspect]
     Active Substance: BISOPROLOL FUMARATE\HYDROCHLOROTHIAZIDE
     Indication: BLOOD PRESSURE INADEQUATELY CONTROLLED
     Dosage: 2.5 MG
     Route: 065
  8. LEXOTAN [Concomitant]
     Active Substance: BROMAZEPAM
     Indication: PRODUCT USED FOR UNKNOWN INDICATION
     Dosage: 0.5 DF, UNK
     Route: 065
  9. CONCOR [Concomitant]
     Active Substance: BISOPROLOL FUMARATE
     Indication: PRODUCT USED FOR UNKNOWN INDICATION
     Dosage: UNK
     Route: 065
  10. OLMETEC [Suspect]
     Active Substance: OLMESARTAN MEDOXOMIL
     Dosage: 40 MG
     Route: 065
     Dates: start: 20200909
  11. AMLODIPINE BESILATE [Suspect]
     Active Substance: AMLODIPINE BESYLATE
     Indication: BLOOD PRESSURE INADEQUATELY CONTROLLED
     Dosage: UNK
     Route: 065

REACTIONS (26)
  - Uterine disorder [Unknown]
  - Psoriasis [Unknown]
  - Retinal tear [Unknown]
  - Tremor [Unknown]
  - Tinnitus [Unknown]
  - Autoimmune thyroiditis [Unknown]
  - Rheumatoid arthritis [Unknown]
  - Hyperthyroidism [Unknown]
  - Drug ineffective [Unknown]
  - Muscular weakness [Unknown]
  - Weight decreased [Unknown]
  - Cataract [Unknown]
  - Oedema [Unknown]
  - Hypoaesthesia [Unknown]
  - Varicose vein [Unknown]
  - Hypothyroidism [Unknown]
  - Swelling face [Unknown]
  - Retinal disorder [Unknown]
  - Asthenia [Unknown]
  - Tachycardia [Unknown]
  - Peripheral swelling [Unknown]
  - Swelling of eyelid [Unknown]
  - Visual impairment [Not Recovered/Not Resolved]
  - Emotional distress [Unknown]
  - Urinary tract infection [Unknown]
  - Nausea [Unknown]

NARRATIVE: CASE EVENT DATE: 2012
